FAERS Safety Report 17072090 (Version 1)
Quarter: 2019Q4

REPORT INFORMATION
  Report Type: Report from Study
  Country: ES (occurrence: ES)
  Receive Date: 20191125
  Receipt Date: 20191125
  Transmission Date: 20200122
  Serious: Yes (Other)
  Sender: FDA-Public Use
  Company Number: NVSC2019ES043511

PATIENT
  Age: 31 Year
  Sex: Male

DRUGS (7)
  1. OMEPRAZOLE. [Concomitant]
     Active Substance: OMEPRAZOLE
     Indication: GENERAL PHYSICAL HEALTH DETERIORATION
     Dosage: UNK
     Route: 048
     Dates: start: 20180508
  2. ERELZI [Suspect]
     Active Substance: ETANERCEPT-SZZS
     Indication: RHEUMATOID ARTHRITIS
     Dosage: 50 MG
     Route: 058
     Dates: start: 20190121
  3. METHOTREXATE. [Concomitant]
     Active Substance: METHOTREXATE
     Dosage: UNK
     Route: 065
     Dates: start: 20181122
  4. ACFOL [Concomitant]
     Active Substance: FOLIC ACID
     Indication: PROPHYLAXIS
     Dosage: UNK
     Route: 048
     Dates: start: 20180713
  5. TERBASMIN [Concomitant]
     Active Substance: TERBUTALINE SULFATE
     Indication: GENERAL PHYSICAL HEALTH DETERIORATION
     Dosage: UNK
     Route: 050
     Dates: start: 20150113
  6. METHOTREXATE. [Concomitant]
     Active Substance: METHOTREXATE
     Indication: RHEUMATOID ARTHRITIS
     Dosage: UNK
     Route: 048
     Dates: start: 20180829, end: 20181121
  7. ACECLOFENAC [Concomitant]
     Active Substance: ACECLOFENAC
     Indication: RHEUMATOID ARTHRITIS
     Dosage: UNK
     Route: 048
     Dates: start: 20180627

REACTIONS (2)
  - Pyoderma [Recovered/Resolved]
  - Respiratory tract infection [Recovered/Resolved]

NARRATIVE: CASE EVENT DATE: 20190507
